FAERS Safety Report 9551425 (Version 1)
Quarter: 2013Q2

REPORT INFORMATION
  Report Type: Spontaneous
  Country: US (occurrence: None)
  Receive Date: 20130627
  Receipt Date: 20130627
  Transmission Date: 20140414
  Serious: No
  Sender: FDA-Public Use
  Company Number: 1000045229

PATIENT
  Age: 60 Year
  Sex: Female

DRUGS (6)
  1. LINZESS (LINACLOTIDE) (145 MICROGRAM, CAPSULES) [Suspect]
     Indication: CONSTIPATION
     Dosage: 1 IN 1 D
     Route: 048
     Dates: start: 20130513
  2. FIORICET (BUTALBITAL, ACETAMINOPHEN, CAFFEINE) (BUTALBITAL, ACETAMINOPHEN, CAFFEINE) [Concomitant]
  3. COREG CR (CARVEDILOL) (CARVEDILOL) [Concomitant]
  4. POTASSIUM (POTASSIUM) (POTASSIUM) [Concomitant]
  5. PEPCID AC (FAMOTIDINE) (FAMOTIDINE) [Concomitant]
  6. VITAMIN D (VITAMIN D) (VITAMIN D) [Concomitant]

REACTIONS (5)
  - Headache [None]
  - Nausea [None]
  - Pruritus generalised [None]
  - Paraesthesia [None]
  - Abdominal pain [None]
